FAERS Safety Report 7468702-0 (Version None)
Quarter: 2011Q2

REPORT INFORMATION
  Report Type: 
  Country: None (occurrence: None)
  Receive Date: 20110510
  Receipt Date: 20110428
  Transmission Date: 20111010
  Serious: No
  Sender: FDA-Public Use
  Company Number: US-BIOGENIDEC-2011BI003855

PATIENT
  Age: 57 Year
  Sex: Female

DRUGS (1)
  1. TYSABRI [Suspect]
     Indication: MULTIPLE SCLEROSIS
     Route: 042
     Dates: start: 20101013

REACTIONS (10)
  - SINUS CONGESTION [None]
  - HEADACHE [None]
  - EPISTAXIS [None]
  - STRESS [None]
  - SINUS DISORDER [None]
  - GAIT DISTURBANCE [None]
  - DRUG INEFFECTIVE [None]
  - MULTIPLE ALLERGIES [None]
  - SINUSITIS [None]
  - MUSCULOSKELETAL DISORDER [None]
